FAERS Safety Report 9350801 (Version 5)
Quarter: 2013Q3

REPORT INFORMATION
  Report Type: Spontaneous
  Country: DE (occurrence: DE)
  Receive Date: 20130617
  Receipt Date: 20130923
  Transmission Date: 20140515
  Serious: Yes (Other)
  Sender: FDA-Public Use
  Company Number: DE-JNJFOC-20130607581

PATIENT
  Age: 72 Year
  Sex: Female
  Weight: 50 kg

DRUGS (1)
  1. XARELTO [Suspect]
     Indication: ARRHYTHMIA
     Route: 048
     Dates: start: 201212, end: 201303

REACTIONS (2)
  - Purpura [Recovering/Resolving]
  - Rash maculo-papular [Recovering/Resolving]
